FAERS Safety Report 7987494-X (Version None)
Quarter: 2011Q4

REPORT INFORMATION
  Report Type: 
  Country: None (occurrence: None)
  Receive Date: 20111216
  Receipt Date: 20111205
  Transmission Date: 20120403
  Serious: Yes (Other)
  Sender: FDA-Public Use
  Company Number: PHHY2011BR107578

PATIENT
  Sex: Male

DRUGS (4)
  1. EXELON [Suspect]
     Dosage: 18MG/10CM2  ONE PATCH A DAY
     Route: 062
  2. MELHORAL INFANTIL [Concomitant]
     Dosage: 100 MG, UNK
  3. CITALOPRAM HYDROBROMIDE [Concomitant]
     Dosage: 20 MG, UNK
  4. EXELON [Suspect]
     Indication: DEMENTIA ALZHEIMER'S TYPE
     Dosage: 9MG/5CM2, ONE PATCH A DAY
     Route: 062

REACTIONS (4)
  - STRESS [None]
  - AFFECT LABILITY [None]
  - EATING DISORDER [None]
  - CEREBROVASCULAR ACCIDENT [None]
